FAERS Safety Report 17556757 (Version 1)
Quarter: 2020Q1

REPORT INFORMATION
  Report Type: Spontaneous
  Country: US (occurrence: US)
  Receive Date: 20200311
  Receipt Date: 20200311
  Transmission Date: 20200409
  Serious: No
  Sender: FDA-Public Use
  Company Number: None

PATIENT
  Age: 58 Year
  Sex: Female

DRUGS (1)
  1. VERZENIO [Suspect]
     Active Substance: ABEMACICLIB
     Route: 048
     Dates: start: 20200131

REACTIONS (4)
  - Fatigue [None]
  - Alopecia [None]
  - Cough [None]
  - Arthralgia [None]

NARRATIVE: CASE EVENT DATE: 20200311
